FAERS Safety Report 6338145-1 (Version None)
Quarter: 2009Q3

REPORT INFORMATION
  Report Type: 
  Country: None (occurrence: None)
  Receive Date: 20090902
  Receipt Date: 20090825
  Transmission Date: 20100115
  Serious: Yes (Other)
  Sender: FDA-Public Use
  Company Number: GB-PFIZER INC-2009260173

PATIENT
  Age: 65 Year

DRUGS (3)
  1. TOLTERODINE TARTRATE [Suspect]
     Indication: POLLAKIURIA
     Dosage: 4 MG, 1X/DAY
     Route: 048
  2. TOLTERODINE TARTRATE [Suspect]
     Indication: MICTURITION URGENCY
  3. TOLTERODINE TARTRATE [Suspect]
     Indication: INCONTINENCE

REACTIONS (1)
  - ERYTHEMA MULTIFORME [None]
